FAERS Safety Report 8815661 (Version 1)
Quarter: 2012Q4

REPORT INFORMATION
  Report Type: 
  Country: US (occurrence: US)
  Receive Date: 20120928
  Receipt Date: 20120928
  Transmission Date: 20130627
  Serious: No
  Sender: FDA-Public Use
  Company Number: US-ASTRAZENECA-2012SE72822

PATIENT
  Age: 81 Year
  Sex: Female
  Weight: 76.2 kg

DRUGS (10)
  1. PULMICORT FLEXHALER [Suspect]
     Indication: DYSPNOEA
     Route: 055
     Dates: start: 20120914
  2. SYMBICORT [Suspect]
     Indication: DYSPNOEA
     Dosage: DOSE, FREQUENCY UNKNOWN
     Route: 055
     Dates: start: 20120208
  3. OMEPRAZOLE [Suspect]
     Indication: GASTROOESOPHAGEAL REFLUX DISEASE
     Route: 048
  4. NADOLOL [Concomitant]
     Indication: ATRIAL FIBRILLATION
     Route: 048
  5. ASPIRIN [Concomitant]
     Indication: ATRIAL FIBRILLATION
     Route: 048
  6. HYDROCHOLOROTHIAZIDE [Concomitant]
     Indication: FLUID RETENTION
  7. KLOR CON [Concomitant]
     Indication: FLUID RETENTION
  8. CALCIUM [Concomitant]
     Route: 048
  9. MAGNESIUM OXIDE [Concomitant]
     Route: 048
  10. LOVASTATIN [Concomitant]
     Route: 048

REACTIONS (8)
  - Atrial fibrillation [Unknown]
  - Dyspnoea [Unknown]
  - Oropharyngeal pain [Unknown]
  - Swelling [Unknown]
  - Blood potassium decreased [Unknown]
  - Memory impairment [Unknown]
  - Cardiac disorder [Unknown]
  - Drug dose omission [Unknown]
